FAERS Safety Report 6106279-2 (Version None)
Quarter: 2009Q1

REPORT INFORMATION
  Report Type: 
  Country: None (occurrence: None)
  Receive Date: 20090303
  Receipt Date: 20090217
  Transmission Date: 20090719
  Serious: Yes (Other)
  Sender: FDA-Public Use
  Company Number: 2009S1002831

PATIENT
  Age: 58 Year
  Sex: Male

DRUGS (6)
  1. PROPOFOL [Suspect]
     Indication: ANAESTHESIA
  2. CISATRACURIUM BESILATE [Suspect]
     Indication: ANAESTHESIA
  3. MIDAZOLAM HCL [Suspect]
     Indication: ANAESTHESIA
  4. FENTANYL-25 [Suspect]
     Indication: ANAESTHESIA
  5. CHLORHEXIDINE GLUCONATE [Suspect]
  6. VANCOMYCIN (CON.) [Concomitant]

REACTIONS (1)
  - ANAPHYLACTIC REACTION [None]
